FAERS Safety Report 14750962 (Version 1)
Quarter: 2018Q2

REPORT INFORMATION
  Report Type: Spontaneous
  Country: US (occurrence: US)
  Receive Date: 20180412
  Receipt Date: 20180412
  Transmission Date: 20180711
  Serious: Yes (Other)
  Sender: FDA-Public Use
  Company Number: US-ROCHE-2106159

PATIENT
  Sex: Female
  Weight: 80.81 kg

DRUGS (11)
  1. LORATADINE. [Concomitant]
     Active Substance: LORATADINE
     Route: 065
  2. PROBIOTIC (ENZYMES, INC) [Concomitant]
     Route: 065
  3. PEPCID (UNITED STATES) [Concomitant]
     Route: 065
  4. XOLAIR [Suspect]
     Active Substance: OMALIZUMAB
     Indication: ASTHMA
     Route: 065
     Dates: start: 20130619
  5. TRAMADOL. [Concomitant]
     Active Substance: TRAMADOL
     Route: 065
  6. ASTEPRO [Concomitant]
     Active Substance: AZELASTINE HYDROCHLORIDE
     Route: 065
  7. VENTOLIN [Concomitant]
     Active Substance: ALBUTEROL SULFATE
     Route: 065
  8. SYMBICORT [Concomitant]
     Active Substance: BUDESONIDE\FORMOTEROL FUMARATE DIHYDRATE
     Dosage: 160
     Route: 065
  9. BRISDELLE [Concomitant]
     Active Substance: PAROXETINE MESYLATE
     Route: 065
  10. LOSARTAN. [Concomitant]
     Active Substance: LOSARTAN
     Route: 065
  11. MEGAKRILL [Concomitant]
     Route: 065

REACTIONS (4)
  - Nephrolithiasis [Not Recovered/Not Resolved]
  - Hyperparathyroidism [Not Recovered/Not Resolved]
  - Depression [Unknown]
  - Osteoporosis [Unknown]
